FAERS Safety Report 11997683 (Version 1)
Quarter: 2016Q1

REPORT INFORMATION
  Report Type: Spontaneous
  Country: US (occurrence: US)
  Receive Date: 20160203
  Receipt Date: 20160203
  Transmission Date: 20160526
  Serious: No
  Sender: FDA-Public Use
  Company Number: US-ANACOR-2015ANA00233

PATIENT
  Sex: Male

DRUGS (2)
  1. SEVERAL UNSPECIFIED MEDICATIONS [Suspect]
     Active Substance: UNSPECIFIED INGREDIENT
  2. KERYDIN [Suspect]
     Active Substance: TAVABOROLE
     Dosage: UNK
     Dates: start: 20151125, end: 20151230

REACTIONS (2)
  - Application site pain [Unknown]
  - Drug interaction [Unknown]

NARRATIVE: CASE EVENT DATE: 2015
